FAERS Safety Report 5502685-5 (Version None)
Quarter: 2007Q4

REPORT INFORMATION
  Report Type: 
  Country: None (occurrence: None)
  Receive Date: 20071031
  Receipt Date: 20071017
  Transmission Date: 20080405
  Serious: Yes (Other)
  Sender: FDA-Public Use
  Company Number: FR-TYCO HEALTHCARE/MALLINCKRODT-T200701262

PATIENT

DRUGS (1)
  1. ACETAMINOPHEN AND CODEINE PHOSPHATE [Suspect]
     Indication: ARTHRALGIA
     Dosage: MEAN DAILY DOSE OF 6G

REACTIONS (1)
  - HEPATIC CIRRHOSIS [None]
